FAERS Safety Report 4392763-9 (Version None)
Quarter: 2004Q3

REPORT INFORMATION
  Report Type: 
  Country: None (occurrence: None)
  Receive Date: 20040702
  Receipt Date: 20040617
  Transmission Date: 20050211
  Serious: No
  Sender: FDA-Public Use
  Company Number: 2004GB01468

PATIENT
  Sex: Female

DRUGS (1)
  1. TAMOXIFEN [Suspect]
     Dosage: 20 MG DAILY PO
     Route: 048
     Dates: start: 20020101

REACTIONS (1)
  - RETINAL DETACHMENT [None]
